FAERS Safety Report 4861347-8 (Version None)
Quarter: 2005Q4

REPORT INFORMATION
  Report Type: 
  Country: None (occurrence: None)
  Receive Date: 20051129
  Receipt Date: 20050104
  Transmission Date: 20060501
  Serious: Yes (Life-Threatening, Hospitalization)
  Sender: FDA-Public Use
  Company Number: WAES 0501USA00234

PATIENT
  Age: 78 Year
  Sex: Male

DRUGS (5)
  1. FOSAMAX [Suspect]
     Indication: OSTEOPOROSIS
     Dosage: 70 MG WKY PO
     Route: 048
     Dates: start: 20041106, end: 20041106
  2. HYTRIN [Concomitant]
  3. LASIX [Concomitant]
  4. PRINIVIL [Concomitant]
  5. ZOCOR [Concomitant]

REACTIONS (1)
  - DYSPEPSIA [None]
